FAERS Safety Report 8412603-8 (Version None)
Quarter: 2012Q2

REPORT INFORMATION
  Report Type: 
  Country: None (occurrence: None)
  Receive Date: 20120605
  Receipt Date: 20120522
  Transmission Date: 20120825
  Serious: Yes (Death, Life-Threatening, Other)
  Sender: FDA-Public Use
  Company Number: US-MYLANLABS-2009AL002578

PATIENT
  Sex: Male
  Weight: 140.62 kg

DRUGS (6)
  1. ASCORBIC ACID [Concomitant]
  2. DIURETIC [Concomitant]
  3. POTASSIUM CHLORIDE [Concomitant]
  4. LASIX [Concomitant]
  5. DIGOXIN [Suspect]
     Route: 048
     Dates: start: 20060128
  6. VASOTEC [Concomitant]

REACTIONS (15)
  - ECONOMIC PROBLEM [None]
  - HAEMOPTYSIS [None]
  - DEATH [None]
  - CARDIOMYOPATHY [None]
  - INJURY [None]
  - CARDIOMEGALY [None]
  - PULMONARY CONGESTION [None]
  - BRONCHITIS [None]
  - COUGH [None]
  - MYOCARDIAL INFARCTION [None]
  - TOBACCO USER [None]
  - HEART RATE INCREASED [None]
  - RHONCHI [None]
  - ILL-DEFINED DISORDER [None]
  - CARDIAC ARREST [None]
